FAERS Safety Report 14425741 (Version 1)
Quarter: 2018Q1

REPORT INFORMATION
  Report Type: Spontaneous
  Country: US (occurrence: US)
  Receive Date: 20180122
  Receipt Date: 20180122
  Transmission Date: 20180509
  Serious: Yes (Disabling)
  Sender: FDA-Public Use
  Company Number: None

PATIENT
  Age: 53 Year
  Sex: Male
  Weight: 117 kg

DRUGS (12)
  1. LEXAPRO [Concomitant]
     Active Substance: ESCITALOPRAM OXALATE
  2. AMLODIPINE [Concomitant]
     Active Substance: AMLODIPINE BESYLATE
  3. ATORVASTATIN [Concomitant]
     Active Substance: ATORVASTATIN
  4. GEADON [Concomitant]
  5. BAYER [Concomitant]
     Active Substance: ASPIRIN
  6. BUSPIRONE [Suspect]
     Active Substance: BUSPIRONE HYDROCHLORIDE
     Indication: STRESS
     Dosage: ?          QUANTITY:2 CAPSULE(S);?
     Route: 048
     Dates: start: 20140801, end: 20141101
  7. GLIPIZIDE. [Concomitant]
     Active Substance: GLIPIZIDE
  8. LOSARTAN. [Concomitant]
     Active Substance: LOSARTAN
  9. ABILIFY [Concomitant]
     Active Substance: ARIPIPRAZOLE
  10. METFORMIN [Concomitant]
     Active Substance: METFORMIN HYDROCHLORIDE
  11. HYDROCHLOROTHIAZIDE. [Concomitant]
     Active Substance: HYDROCHLOROTHIAZIDE
  12. MULTIVITAMIN [Concomitant]
     Active Substance: VITAMINS

REACTIONS (3)
  - Diabetes mellitus [None]
  - Panic attack [None]
  - Weight increased [None]

NARRATIVE: CASE EVENT DATE: 20140801
